FAERS Safety Report 8389792-7 (Version None)
Quarter: 2012Q2

REPORT INFORMATION
  Report Type: 
  Country: None (occurrence: None)
  Receive Date: 20120529
  Receipt Date: 20120523
  Transmission Date: 20120825
  Serious: Yes (Other)
  Sender: FDA-Public Use
  Company Number: PHHY2012IN044704

PATIENT
  Age: 65 Year
  Sex: Female

DRUGS (1)
  1. ZOLEDRONOC ACID [Suspect]
     Indication: OSTEOPOROSIS
     Dosage: 5 MG PER 100 ML
     Route: 042
     Dates: start: 20111226

REACTIONS (5)
  - INJURY [None]
  - PYREXIA [None]
  - BLOOD CHOLESTEROL INCREASED [None]
  - PAIN IN EXTREMITY [None]
  - CHILLS [None]
